FAERS Safety Report 6173589-2 (Version None)
Quarter: 2009Q2

REPORT INFORMATION
  Report Type: 
  Country: None (occurrence: None)
  Receive Date: 20090429
  Receipt Date: 20090429
  Transmission Date: 20091009
  Serious: Yes (Other)
  Sender: FDA-Public Use
  Company Number: None

PATIENT
  Sex: Female

DRUGS (4)
  1. FENTANYL [Suspect]
     Indication: ARTHRALGIA
     Dosage: 1 PATCH EVERY 3 DAYS SKIN PATCH
     Route: 062
     Dates: start: 20090131
  2. FENTANYL [Suspect]
     Indication: ARTHRALGIA
     Dosage: 1 PATCH EVERY 3 DAYS SKIN PATCH
     Route: 062
     Dates: start: 20090203
  3. FENTANYL [Suspect]
     Indication: ARTHRALGIA
     Dosage: 1 PATCH EVERY 3 DAYS SKIN PATCH
     Route: 062
     Dates: start: 20090206
  4. FENTANYL [Suspect]
     Indication: ARTHRALGIA
     Dosage: 1 PATCH EVERY 3 DAYS SKIN PATCH
     Route: 062
     Dates: start: 20090209

REACTIONS (5)
  - COUGH [None]
  - MALAISE [None]
  - PRODUCT QUALITY ISSUE [None]
  - RETCHING [None]
  - VOMITING [None]
